FAERS Safety Report 7747176-6 (Version None)
Quarter: 2011Q3

REPORT INFORMATION
  Report Type: 
  Country: None (occurrence: None)
  Receive Date: 20110913
  Receipt Date: 20110907
  Transmission Date: 20111222
  Serious: Yes (Hospitalization, Other)
  Sender: FDA-Public Use
  Company Number: FR-PFIZER INC-2011209501

PATIENT
  Age: 48 Year
  Sex: Male

DRUGS (10)
  1. AMITRIPTYLINE HCL [Suspect]
     Dosage: 20 MG, SINGLE
     Route: 048
     Dates: start: 20101208, end: 20101208
  2. FLUTICASONE FUROATE [Concomitant]
     Dosage: UNK
  3. DIPROSONE [Concomitant]
     Dosage: UNK
  4. LYRICA [Suspect]
     Dosage: UNK
     Route: 048
     Dates: start: 20101208
  5. TRAMADOL HYDROCHLORIDE [Concomitant]
     Dosage: UNK
  6. CYMBALTA [Suspect]
     Dosage: UNK
     Route: 048
     Dates: start: 20101208
  7. OMEPRAZOLE [Concomitant]
     Dosage: UNK
  8. TERCIAN [Suspect]
     Dosage: UNK
     Route: 048
     Dates: start: 20101208
  9. POLYVIDONE [Concomitant]
     Dosage: UNK
  10. STER-DEX [Concomitant]
     Dosage: UNK

REACTIONS (8)
  - QRS AXIS ABNORMAL [None]
  - TOXICITY TO VARIOUS AGENTS [None]
  - SINUS TACHYCARDIA [None]
  - LEFT VENTRICULAR HYPERTROPHY [None]
  - SOMNOLENCE [None]
  - AGITATION [None]
  - AGGRESSION [None]
  - BUNDLE BRANCH BLOCK RIGHT [None]
